FAERS Safety Report 14423799 (Version 1)
Quarter: 2018Q1

REPORT INFORMATION
  Report Type: Spontaneous
  Country: US (occurrence: US)
  Receive Date: 20180120
  Receipt Date: 20180120
  Transmission Date: 20180509
  Serious: Yes (Hospitalization)
  Sender: FDA-Public Use
  Company Number: None

PATIENT
  Age: 31 Year
  Sex: Male
  Weight: 86.1 kg

DRUGS (5)
  1. CYCLOPHOSPHAMIDE. [Suspect]
     Active Substance: CYCLOPHOSPHAMIDE
     Dates: end: 20171223
  2. ONCASPAR [Suspect]
     Active Substance: PEGASPARGASE
     Dates: end: 20180109
  3. CYTARABINE. [Suspect]
     Active Substance: CYTARABINE
     Dates: end: 20180105
  4. MERCAPTOPURINE. [Suspect]
     Active Substance: MERCAPTOPURINE
     Dates: end: 20180106
  5. METHOTREXATE. [Suspect]
     Active Substance: METHOTREXATE
     Dates: end: 20180102

REACTIONS (2)
  - Pancytopenia [None]
  - Headache [None]

NARRATIVE: CASE EVENT DATE: 20180107
